FAERS Safety Report 8208719-1 (Version None)
Quarter: 2012Q1

REPORT INFORMATION
  Report Type: 
  Country: None (occurrence: None)
  Receive Date: 20120314
  Receipt Date: 20120306
  Transmission Date: 20120608
  Serious: Yes (Hospitalization, Other)
  Sender: FDA-Public Use
  Company Number: US-PFIZER INC-2012030839

PATIENT
  Sex: Female
  Weight: 73.469 kg

DRUGS (2)
  1. TRACLEER [Concomitant]
     Dosage: UNK
  2. REVATIO [Suspect]
     Indication: PULMONARY ARTERIAL HYPERTENSION
     Dosage: 20 MG, 3X/DAY
     Route: 048
     Dates: start: 20090801

REACTIONS (2)
  - DYSPNOEA [None]
  - CHEST PAIN [None]
